FAERS Safety Report 4276567-3 (Version None)
Quarter: 2004Q1

REPORT INFORMATION
  Report Type: 
  Country: None (occurrence: None)
  Receive Date: 20040120
  Receipt Date: 20031230
  Transmission Date: 20041129
  Serious: Yes (Other)
  Sender: FDA-Public Use
  Company Number: 7089

PATIENT

DRUGS (1)
  1. METHOTREXATE [Suspect]
     Indication: CROHN'S DISEASE
     Dosage: 25 MG WEEKLY IM
     Route: 030

REACTIONS (1)
  - ALVEOLITIS ALLERGIC [None]
